FAERS Safety Report 22659728 (Version 4)
Quarter: 2025Q1

REPORT INFORMATION
  Report Type: Report from Study
  Country: CA (occurrence: CA)
  Receive Date: 20230630
  Receipt Date: 20250117
  Transmission Date: 20250408
  Serious: Yes (Hospitalization, Other)
  Sender: TAKEDA
  Company Number: CA-TAKEDA-2022TUS098103

PATIENT
  Sex: Female

DRUGS (4)
  1. VEDOLIZUMAB [Suspect]
     Active Substance: VEDOLIZUMAB
     Indication: Crohn^s disease
  2. VEDOLIZUMAB [Suspect]
     Active Substance: VEDOLIZUMAB
     Indication: Crohn^s disease
     Dosage: 108 MILLIGRAM, Q2WEEKS
     Dates: start: 20221109
  3. PREDNISONE [Suspect]
     Active Substance: PREDNISONE
     Indication: Product used for unknown indication
  4. B12 [Concomitant]
     Dosage: UNK UNK, MONTHLY

REACTIONS (13)
  - Crohn^s disease [Unknown]
  - Small intestinal obstruction [Unknown]
  - Intestinal ulcer [Unknown]
  - Biliary dilatation [Unknown]
  - Faeces soft [Unknown]
  - Diarrhoea [Unknown]
  - Alopecia [Unknown]
  - Onychoclasis [Unknown]
  - Hair texture abnormal [Unknown]
  - Dizziness [Unknown]
  - Arthralgia [Unknown]
  - Malaise [Unknown]
  - Frequent bowel movements [Unknown]
